FAERS Safety Report 5304257-4 (Version None)
Quarter: 2007Q2

REPORT INFORMATION
  Report Type: 
  Country: None (occurrence: None)
  Receive Date: 20070423
  Receipt Date: 20070413
  Transmission Date: 20071010
  Serious: Yes (Hospitalization)
  Sender: FDA-Public Use
  Company Number: PHEH2007US05356

PATIENT
  Age: 74 Year
  Sex: Female

DRUGS (4)
  1. ZELNORM [Suspect]
     Indication: CONSTIPATION
     Dosage: 6 MG, BID
     Route: 048
     Dates: start: 20070101
  2. ZELNORM [Suspect]
     Dosage: 6 MG, BID
     Dates: start: 20070329, end: 20070413
  3. CRESTOR [Concomitant]
     Dates: start: 20050101
  4. ATENOLOL [Concomitant]
     Dosage: UNK, UNK
     Dates: start: 20050101

REACTIONS (3)
  - ABDOMINAL PAIN UPPER [None]
  - CHEST PAIN [None]
  - NEPHROLITHIASIS [None]
